FAERS Safety Report 9212804 (Version 1)
Quarter: 2013Q1

REPORT INFORMATION
  Report Type: Spontaneous
  Country: US (occurrence: None)
  Receive Date: 20120820
  Receipt Date: 20120820
  Transmission Date: 20140127
  Serious: No
  Sender: FDA-Public Use
  Company Number: 1000031345

PATIENT
  Age: 53 Year
  Sex: Female

DRUGS (2)
  1. VIIBRYD [Suspect]
     Indication: DEPRESSION
     Dosage: 10 MG 1 IN 1 D
     Route: 048
     Dates: start: 20120321, end: 20120404
  2. VIIBRYD [Suspect]
     Indication: ANXIETY
     Dosage: 10 MG 1 IN 1 D
     Route: 048
     Dates: start: 20120321, end: 20120404

REACTIONS (3)
  - Irritability [None]
  - Insomnia [None]
  - Nausea [None]
